FAERS Safety Report 18963819 (Version 2)
Quarter: 2021Q2

REPORT INFORMATION
  Report Type: Spontaneous
  Country: DE (occurrence: DE)
  Receive Date: 20210303
  Receipt Date: 20210401
  Transmission Date: 20210717
  Serious: Yes (Hospitalization, Other)
  Sender: FDA-Public Use
  Company Number: DE-PFIZER INC-2021185499

PATIENT
  Sex: Female
  Weight: 100 kg

DRUGS (41)
  1. ESOMEPRAZOLE. [Concomitant]
     Active Substance: ESOMEPRAZOLE MAGNESIUM
     Dosage: UNK
  2. ANAFRANIL [Concomitant]
     Active Substance: CLOMIPRAMINE HYDROCHLORIDE
     Indication: PAIN
     Dosage: UNK
  3. ARCOXIA [Concomitant]
     Active Substance: ETORICOXIB
     Dosage: UNK
  4. RANITIDIN 1 A PHARMA [Suspect]
     Active Substance: RANITIDINE HYDROCHLORIDE
     Indication: CHRONIC GASTRITIS
     Dosage: 300 MG
     Dates: start: 201510, end: 201703
  5. RANITIDIN ^BASICS^ [Concomitant]
     Dosage: UNK
  6. MIRTAZAPINE. [Suspect]
     Active Substance: MIRTAZAPINE
     Dosage: 15 MG, DAILY
  7. TILIDIN N [Suspect]
     Active Substance: NALOXONE HYDROCHLORIDE\TILIDINE HYDROCHLORIDE
     Indication: ARTHRALGIA
     Dosage: 1 DF, TWICE A DAY
  8. DICLOFENAC [Concomitant]
     Active Substance: DICLOFENAC
     Indication: MYOSCLEROSIS
     Dosage: UNK
  9. DULOXETINE. [Suspect]
     Active Substance: DULOXETINE
     Indication: FIBROMYALGIA
  10. TREVILOR RETARD [Concomitant]
     Active Substance: VENLAFAXINE HYDROCHLORIDE
     Dosage: UNK
  11. LUVASED [Concomitant]
     Active Substance: HERBALS\HOPS\VALERIAN
     Dosage: UNK
  12. AMITRIPTYLINE [Concomitant]
     Active Substance: AMITRIPTYLINE
     Dosage: UNK
  13. MAGNESIUM [Concomitant]
     Active Substance: MAGNESIUM
     Dosage: UNK
  14. REMIFEMIN PLUS [Concomitant]
     Active Substance: BLACK COHOSH\HERBALS\HYPERICUM PERFORATUM
     Dosage: UNK
  15. RANITIDIN 1 A PHARMA [Suspect]
     Active Substance: RANITIDINE HYDROCHLORIDE
     Indication: HIATUS HERNIA
     Dosage: 300 MG
     Dates: start: 1999
  16. RANITIDIN 1 A PHARMA [Suspect]
     Active Substance: RANITIDINE HYDROCHLORIDE
     Dosage: 300 MG
     Dates: start: 201806, end: 202001
  17. DULOXETINE. [Suspect]
     Active Substance: DULOXETINE
     Indication: PAIN
     Dosage: 60 MG, ONCE A DAY
     Dates: end: 201010
  18. RANITIDINE HYDROCHLORIDE. [Suspect]
     Active Substance: RANITIDINE HYDROCHLORIDE
     Dosage: UNK
  19. ASPIRIN. [Concomitant]
     Active Substance: ASPIRIN
     Dosage: UNK
  20. NOVALGIN (METAMIZOLE SODIUM) [Concomitant]
     Active Substance: METAMIZOLE SODIUM
     Indication: PAIN
     Dosage: UNK
     Dates: start: 200607
  21. DIAZEPAM. [Concomitant]
     Active Substance: DIAZEPAM
     Dosage: UNK
  22. RANITIDIN 1 A PHARMA [Suspect]
     Active Substance: RANITIDINE HYDROCHLORIDE
     Indication: GASTROOESOPHAGEAL REFLUX DISEASE
     Dosage: 300 MG
     Dates: start: 201710, end: 201802
  23. TETRAZEPAM [Concomitant]
     Active Substance: TETRAZEPAM
     Dosage: UNK
  24. VOLTAREN RESINAT [Concomitant]
     Active Substance: DICLOFENAC
     Dosage: UNK
  25. ACC [ACETYLCYSTEINE] [Concomitant]
     Active Substance: ACETYLCYSTEINE
     Dosage: UNK
  26. RANITIDIN [Concomitant]
     Active Substance: RANITIDINE HYDROCHLORIDE
     Dosage: UNK
  27. LOTRICOMB [Concomitant]
     Active Substance: BETAMETHASONE DIPROPIONATE\CLOTRIMAZOLE
     Dosage: UNK
  28. PANTOZOL [Concomitant]
     Active Substance: PANTOPRAZOLE SODIUM
     Dosage: UNK
  29. RAMIPRIL. [Concomitant]
     Active Substance: RAMIPRIL
     Dosage: UNK
  30. DOXEPIN HCL [Suspect]
     Active Substance: DOXEPIN HYDROCHLORIDE
     Dosage: UNK
  31. KATADOLON [FLUPIRTINE MALEATE] [Suspect]
     Active Substance: FLUPIRTINE MALEATE
     Dosage: UNK, DAILY
  32. PANTOPRAZOLE [Concomitant]
     Active Substance: PANTOPRAZOLE
     Dosage: UNK
  33. DUSPATAL [Concomitant]
     Active Substance: MEBEVERINE
     Dosage: UNK
  34. MYDOCALM [Concomitant]
     Dosage: UNK
  35. OMEPRAZOLE. [Concomitant]
     Active Substance: OMEPRAZOLE
     Dosage: UNK
  36. CELEBREX [Concomitant]
     Active Substance: CELECOXIB
     Dosage: UNK
  37. OMEBETA [Concomitant]
     Dosage: UNK
  38. CALCI D [Concomitant]
     Dosage: UNK
  39. MAPROTILINE [Concomitant]
     Active Substance: MAPROTILINE
     Indication: PAIN
     Dosage: UNK
  40. TRAMUNDIN [Concomitant]
     Active Substance: TRAMADOL HYDROCHLORIDE
     Dosage: UNK
  41. PREGABALIN. [Concomitant]
     Active Substance: PREGABALIN
     Dosage: UNK

REACTIONS (126)
  - Dizziness [Unknown]
  - Radial nerve palsy [Unknown]
  - Osteosclerosis [Unknown]
  - Haematoma [Not Recovered/Not Resolved]
  - Patellofemoral pain syndrome [Unknown]
  - Multiple sclerosis [Unknown]
  - Weight increased [Unknown]
  - Sinobronchitis [Unknown]
  - Intervertebral disc protrusion [Unknown]
  - Atrial tachycardia [Unknown]
  - Paranasal sinus inflammation [Unknown]
  - Vitamin D deficiency [Recovering/Resolving]
  - Spinal osteoarthritis [Unknown]
  - Gastrointestinal infection [Unknown]
  - Gastrointestinal motility disorder [Unknown]
  - Pain in extremity [Recovering/Resolving]
  - Cyst [Unknown]
  - Myalgia [Unknown]
  - Somatic symptom disorder [Unknown]
  - Radial nerve palsy [Unknown]
  - Nasal turbinate hypertrophy [Unknown]
  - Humerus fracture [Unknown]
  - Fibromyalgia [Recovered/Resolved]
  - Arthralgia [Unknown]
  - Fall [Recovering/Resolving]
  - Hypoaesthesia [Unknown]
  - Facial paresis [Unknown]
  - Angina pectoris [Unknown]
  - Cataract [Unknown]
  - Tension headache [Unknown]
  - Dry mouth [Unknown]
  - Depression [Unknown]
  - Hot flush [Unknown]
  - Hyperlipidaemia [Unknown]
  - Scar [Unknown]
  - Sensation of foreign body [Unknown]
  - Sciatica [Unknown]
  - Meniscus injury [Unknown]
  - Foramen magnum stenosis [Unknown]
  - Crohn^s disease [Unknown]
  - Dysaesthesia [Unknown]
  - Myofascial pain syndrome [Recovering/Resolving]
  - Injury [Unknown]
  - Lymphoedema [Unknown]
  - Fatigue [Unknown]
  - Bone density decreased [Unknown]
  - Osteopenia [Unknown]
  - Flatulence [Unknown]
  - Blood count abnormal [Recovered/Resolved]
  - Blood iron decreased [Recovered/Resolved]
  - Migraine [Unknown]
  - Osteoarthritis [Unknown]
  - Impaired healing [Recovering/Resolving]
  - Micturition disorder [Unknown]
  - Constipation [Not Recovered/Not Resolved]
  - Obstructive airways disorder [Unknown]
  - Diarrhoea [Not Recovered/Not Resolved]
  - Joint stiffness [Unknown]
  - Limb injury [Unknown]
  - Uterine leiomyoma [Unknown]
  - Supraventricular tachycardia [Unknown]
  - Vomiting [Unknown]
  - Tachycardia [Unknown]
  - Chondropathy [Unknown]
  - Device related infection [Unknown]
  - Pathological fracture [Unknown]
  - Joint effusion [Unknown]
  - Abdominal discomfort [Not Recovered/Not Resolved]
  - Nocturia [Unknown]
  - Peripheral swelling [Recovered/Resolved]
  - Restrictive pulmonary disease [Unknown]
  - Myofascial pain syndrome [Unknown]
  - Stupor [Unknown]
  - Bursitis [Unknown]
  - Iliotibial band syndrome [Unknown]
  - Gastritis [Unknown]
  - Asthenia [Unknown]
  - Peripheral nerve lesion [Unknown]
  - Movement disorder [Recovering/Resolving]
  - Rotator cuff syndrome [Recovered/Resolved]
  - Dysplasia [Unknown]
  - Nasal septum deviation [Unknown]
  - Tendon disorder [Unknown]
  - Stress [Unknown]
  - Back pain [Unknown]
  - Eczema [Unknown]
  - Muscle strain [Unknown]
  - Vertebral lesion [Unknown]
  - Abdominal pain upper [Recovered/Resolved]
  - Irritable bowel syndrome [Unknown]
  - Disturbance in attention [Unknown]
  - Alanine aminotransferase increased [Unknown]
  - Arthropathy [Unknown]
  - Nail avulsion [Unknown]
  - Femur fracture [Unknown]
  - Nausea [Not Recovered/Not Resolved]
  - Headache [Unknown]
  - Junctional ectopic tachycardia [Unknown]
  - Osteoarthritis [Unknown]
  - Personality disorder [Unknown]
  - Anxiety disorder [Unknown]
  - Defaecation disorder [Unknown]
  - Dyspnoea exertional [Unknown]
  - Hypertension [Unknown]
  - Sleep disorder [Unknown]
  - Facet joint syndrome [Unknown]
  - Dyspepsia [Not Recovered/Not Resolved]
  - Somnolence [Unknown]
  - Gait disturbance [Unknown]
  - Abdominal pain [Recovered/Resolved]
  - Malaise [Unknown]
  - Tremor [Unknown]
  - Groin pain [Unknown]
  - Cartilage injury [Unknown]
  - Cervical vertebral fracture [Unknown]
  - Diverticulitis [Unknown]
  - Suicidal ideation [Not Recovered/Not Resolved]
  - Osteoporosis postmenopausal [Unknown]
  - Hyperhidrosis [Recovering/Resolving]
  - Pain [Unknown]
  - Mental disorder [Unknown]
  - Obesity [Unknown]
  - Visual impairment [Not Recovered/Not Resolved]
  - Diastolic dysfunction [Unknown]
  - Vitamin B12 decreased [Recovered/Resolved]
  - Memory impairment [Unknown]

NARRATIVE: CASE EVENT DATE: 1999
